FAERS Safety Report 7823946-0 (Version None)
Quarter: 2011Q4

REPORT INFORMATION
  Report Type: 
  Country: None (occurrence: None)
  Receive Date: 20111018
  Receipt Date: 20111018
  Transmission Date: 20120403
  Serious: No
  Sender: FDA-Public Use
  Company Number: None

PATIENT
  Age: 66 Year
  Sex: Female

DRUGS (11)
  1. COREG [Concomitant]
  2. EVISTA [Concomitant]
  3. LASIX [Concomitant]
  4. VITAMIN B-12 [Concomitant]
  5. NEURONTIN [Concomitant]
  6. VICODIN [Concomitant]
  7. CYMBALTA [Concomitant]
  8. AMBIEN [Concomitant]
  9. ZESTRIL [Concomitant]
  10. REVLIMID [Suspect]
     Indication: MYELODYSPLASTIC SYNDROME
     Dosage: 10MG QOD ORALLY
     Route: 048
     Dates: start: 20101201, end: 20110901
  11. PEPCID [Concomitant]

REACTIONS (5)
  - KLEBSIELLA INFECTION [None]
  - URINARY TRACT INFECTION [None]
  - PANCYTOPENIA [None]
  - THROMBOCYTOPENIA [None]
  - PRESYNCOPE [None]
